FAERS Safety Report 25924716 (Version 1)
Quarter: 2025Q4

REPORT INFORMATION
  Report Type: Spontaneous
  Country: US (occurrence: US)
  Receive Date: 20251015
  Receipt Date: 20251015
  Transmission Date: 20260117
  Serious: No
  Sender: BAYER HEALTHCARE LLC
  Company Number: US-BAYER-2025A135802

PATIENT

DRUGS (1)
  1. MIRALAX [Suspect]
     Active Substance: POLYETHYLENE GLYCOL 3350
     Indication: Gastrointestinal disorder
     Dosage: HALF THE DOSE EVERY DAY FOR A WEEK
     Route: 048

REACTIONS (1)
  - Incorrect dose administered [Unknown]
